FAERS Safety Report 19436563 (Version 1)
Quarter: 2021Q2

REPORT INFORMATION
  Report Type: Spontaneous
  Country: US (occurrence: US)
  Receive Date: 20210618
  Receipt Date: 20210618
  Transmission Date: 20210717
  Serious: No
  Sender: FDA-Public Use
  Company Number: US-PFIZER INC-2021282330

PATIENT
  Age: 71 Year

DRUGS (1)
  1. PRISTIQ EXTENDED?RELEASE [Suspect]
     Active Substance: DESVENLAFAXINE SUCCINATE
     Indication: BIPOLAR DISORDER
     Dosage: UNK

REACTIONS (5)
  - Mood altered [Unknown]
  - Behaviour disorder [Unknown]
  - Product dose omission issue [Unknown]
  - Confusional state [Unknown]
  - Dizziness [Unknown]
